FAERS Safety Report 24146016 (Version 1)
Quarter: 2024Q3

REPORT INFORMATION
  Report Type: Report from Study
  Country: CA (occurrence: CA)
  Receive Date: 20240729
  Receipt Date: 20240729
  Transmission Date: 20241016
  Serious: Yes (Hospitalization)
  Sender: BIOCON
  Company Number: CA-BIOCON BIOLOGICS LIMITED-BBL2024005469

PATIENT

DRUGS (1)
  1. HULIO [Suspect]
     Active Substance: ADALIMUMAB-FKJP
     Indication: Sarcoidosis
     Dosage: 40 MG 1 EVERY 2 WEEKS, SOLUTION
     Route: 058

REACTIONS (5)
  - Cardiac disorder [Unknown]
  - Gait disturbance [Unknown]
  - Illness [Unknown]
  - Stress [Unknown]
  - Off label use [Unknown]
